FAERS Safety Report 7162253-9 (Version None)
Quarter: 2010Q4

REPORT INFORMATION
  Report Type: 
  Country: None (occurrence: None)
  Receive Date: 20101215
  Receipt Date: 20090923
  Transmission Date: 20110411
  Serious: Yes (Death)
  Sender: FDA-Public Use
  Company Number: CH-PFIZER INC-2009273364

PATIENT
  Age: 76 Year

DRUGS (14)
  1. LYRICA [Suspect]
     Indication: POLYNEUROPATHY
     Dosage: 100 MG, 2X/DAY
     Route: 048
     Dates: start: 20090101
  2. SEROQUEL [Interacting]
     Dosage: 6.25 MG, 2X/DAY
     Route: 048
     Dates: start: 20090609
  3. TRAMAL [Interacting]
     Dosage: 25 MG, 4X/DAY
     Route: 048
     Dates: start: 20090609
  4. CLEXANE [Concomitant]
     Dosage: 40 MG, 1X/DAY
     Route: 058
  5. DAFALGAN [Concomitant]
     Dosage: 1 G, 3X/DAY
     Route: 048
  6. ASPEGIC 1000 [Concomitant]
     Dosage: 100 MG, 1X/DAY
     Route: 048
  7. SORTIS [Concomitant]
     Dosage: 40 MG, 1X/DAY
     Route: 048
     Dates: start: 20090605
  8. LAXOBERON [Concomitant]
     Dosage: 20 GTT, 2X/DAY
     Route: 048
  9. PROSCAR [Concomitant]
     Dosage: 5 MG, 1X/DAY
     Route: 048
  10. XATRAL [Concomitant]
     Dosage: 10 MG, 1X/DAY
     Route: 048
  11. NEXIUM [Concomitant]
     Dosage: 40 MG, 1X/DAY
     Route: 048
  12. SERETIDE [Concomitant]
     Dosage: UNK
     Route: 055
  13. SPIRIVA [Concomitant]
     Dosage: 18 UG, 1X/DAY
     Route: 055
  14. DOSPIR [Concomitant]
     Dosage: UNK
     Route: 055

REACTIONS (1)
  - DEPRESSED LEVEL OF CONSCIOUSNESS [None]
